FAERS Safety Report 5833843-8 (Version None)
Quarter: 2008Q3

REPORT INFORMATION
  Report Type: 
  Country: None (occurrence: None)
  Receive Date: 20080801
  Receipt Date: 20080801
  Transmission Date: 20090109
  Serious: Yes (Other)
  Sender: FDA-Public Use
  Company Number: None

PATIENT
  Age: 32 Year
  Sex: Male
  Weight: 76.6579 kg

DRUGS (1)
  1. PROVIGIL [Suspect]
     Indication: CIRCADIAN RHYTHM SLEEP DISORDER
     Dosage: 150MG 1 PILL PER DAY PO
     Route: 048
     Dates: start: 20080729, end: 20080729

REACTIONS (2)
  - BURNING SENSATION [None]
  - RASH [None]
